FAERS Safety Report 11787480 (Version 1)
Quarter: 2015Q4

REPORT INFORMATION
  Report Type: Spontaneous
  Country: US (occurrence: US)
  Receive Date: 20151130
  Receipt Date: 20151130
  Transmission Date: 20160305
  Serious: Yes (Death, Other)
  Sender: FDA-Public Use
  Company Number: US-GLAXOSMITHKLINE-US2015GSK168963

PATIENT
  Age: 21 Year
  Sex: Female

DRUGS (6)
  1. IBUPROFEN. [Suspect]
     Active Substance: IBUPROFEN
     Indication: PRODUCT USED FOR UNKNOWN INDICATION
     Dosage: 14.4 G, UNK
  2. LAMOTRIGINE. [Suspect]
     Active Substance: LAMOTRIGINE
     Indication: PRODUCT USED FOR UNKNOWN INDICATION
  3. HYDROXYZINE [Suspect]
     Active Substance: HYDROXYZINE\HYDROXYZINE HYDROCHLORIDE
     Indication: PRODUCT USED FOR UNKNOWN INDICATION
     Dosage: 4.5 G, UNK
  4. FLUOXETINE [Suspect]
     Active Substance: FLUOXETINE HYDROCHLORIDE
     Indication: PRODUCT USED FOR UNKNOWN INDICATION
     Dosage: 1.2 G, UNK
  5. TOPIRAMATE. [Suspect]
     Active Substance: TOPIRAMATE
  6. CARBAMAZEPINE. [Suspect]
     Active Substance: CARBAMAZEPINE
     Indication: PRODUCT USED FOR UNKNOWN INDICATION
     Dosage: 17.8 G, UNK

REACTIONS (13)
  - Serotonin syndrome [Unknown]
  - Confusional state [Unknown]
  - Intentional overdose [Fatal]
  - Cardiac arrest [Unknown]
  - Hypertension [Unknown]
  - Generalised tonic-clonic seizure [Unknown]
  - Tachycardia [Unknown]
  - Suicidal ideation [Unknown]
  - Acute respiratory distress syndrome [Unknown]
  - Gait disturbance [Unknown]
  - Dysarthria [Unknown]
  - Mental status changes [Unknown]
  - Electrocardiogram QT prolonged [Unknown]
